FAERS Safety Report 21548739 (Version 1)
Quarter: 2022Q4

REPORT INFORMATION
  Report Type: Spontaneous
  Country: US (occurrence: None)
  Receive Date: 20221102
  Receipt Date: 20221102
  Transmission Date: 20230113
  Serious: Yes (unspecified)
  Sender: FDA-Public Use
  Company Number: None

PATIENT
  Sex: 0

DRUGS (2)
  1. ARIXTRA [Suspect]
     Active Substance: FONDAPARINUX SODIUM
  2. DEVICE [Suspect]
     Active Substance: DEVICE

REACTIONS (1)
  - Product name confusion [None]

NARRATIVE: CASE EVENT DATE: 20221102
